FAERS Safety Report 4342598-8 (Version None)
Quarter: 2004Q2

REPORT INFORMATION
  Report Type: 
  Country: None (occurrence: None)
  Receive Date: 20040416
  Receipt Date: 20040405
  Transmission Date: 20050107
  Serious: Yes (Hospitalization)
  Sender: FDA-Public Use
  Company Number: 2004CG00669

PATIENT
  Age: 45 Year
  Sex: Female

DRUGS (10)
  1. OMEPRAZOLE [Suspect]
     Dates: start: 20031201, end: 20031216
  2. TEGRETOL-XR [Suspect]
     Indication: EPILEPSY
     Dosage: 400 MG BID PO
     Route: 048
     Dates: end: 20031210
  3. PHENOBARBITAL SRT [Suspect]
     Indication: EPILEPSY
     Dosage: 100 MG DAILY PO
     Route: 048
     Dates: end: 20031210
  4. URBANYL [Suspect]
     Indication: EPILEPSY
     Dosage: 10 MG BID PO
     Route: 048
  5. DI-ANTALVIC [Suspect]
     Indication: PAIN IN EXTREMITY
     Dates: start: 20031201, end: 20031216
  6. PRAVASTATIN [Suspect]
     Indication: HYPERLIPIDAEMIA
     Dates: start: 20030601
  7. COLCHICINE [Suspect]
  8. NIFEDIPINE [Suspect]
  9. FRAXIPARINE /FRA/ [Suspect]
     Dates: start: 20031201
  10. ASPEGIC 325 [Suspect]
     Dates: start: 20031201

REACTIONS (15)
  - ANTICONVULSANT DRUG LEVEL INCREASED [None]
  - BILIARY CIRRHOSIS [None]
  - BLOOD TRIGLYCERIDES INCREASED [None]
  - CHOLESTASIS [None]
  - COAGULATION FACTOR V LEVEL INCREASED [None]
  - CONDITION AGGRAVATED [None]
  - ELECTROENCEPHALOGRAM ABNORMAL [None]
  - ENCEPHALOPATHY [None]
  - EPILEPSY [None]
  - GAMMA-GLUTAMYLTRANSFERASE INCREASED [None]
  - GASTROINTESTINAL INFECTION [None]
  - HYPERAMMONAEMIA [None]
  - LIVER DISORDER [None]
  - METABOLIC DISORDER [None]
  - TOE AMPUTATION [None]
